FAERS Safety Report 10781752 (Version 4)
Quarter: 2015Q2

REPORT INFORMATION
  Report Type: Report from Study
  Country: AU (occurrence: AU)
  Receive Date: 20150210
  Receipt Date: 20150410
  Transmission Date: 20150821
  Serious: Yes (Hospitalization, Other)
  Sender: FDA-Public Use
  Company Number: AU-ABBVIE-15K-008-1343973-00

PATIENT
  Age: 58 Year
  Sex: Female

DRUGS (3)
  1. METHOTREXATE [Suspect]
     Active Substance: METHOTREXATE
     Indication: PRODUCT USED FOR UNKNOWN INDICATION
     Route: 065
  2. HUMIRA [Suspect]
     Active Substance: ADALIMUMAB
     Indication: RHEUMATOID ARTHRITIS
     Route: 065
     Dates: start: 20141121, end: 20150130
  3. ARAVA [Concomitant]
     Active Substance: LEFLUNOMIDE
     Indication: PRODUCT USED FOR UNKNOWN INDICATION

REACTIONS (9)
  - Dyspnoea [Not Recovered/Not Resolved]
  - Malaise [Recovering/Resolving]
  - Staphylococcal infection [Recovering/Resolving]
  - Pulmonary mycosis [Recovering/Resolving]
  - Dyspnoea [Unknown]
  - Surgery [Unknown]
  - Toxicity to various agents [Unknown]
  - Rheumatoid arthritis [Recovering/Resolving]
  - Rheumatoid lung [Recovering/Resolving]

NARRATIVE: CASE EVENT DATE: 20141225
